FAERS Safety Report 6155419-8 (Version None)
Quarter: 2009Q2

REPORT INFORMATION
  Report Type: 
  Country: None (occurrence: None)
  Receive Date: 20090415
  Receipt Date: 20090407
  Transmission Date: 20091009
  Serious: Yes (Hospitalization)
  Sender: FDA-Public Use
  Company Number: US-BAYER-200917809NA

PATIENT
  Age: 52 Year
  Sex: Male
  Weight: 80 kg

DRUGS (10)
  1. SORAFENIB [Suspect]
     Indication: METASTATIC MALIGNANT MELANOMA
     Dosage: TOTAL DAILY DOSE: 800 MG  UNIT DOSE: 200 MG
     Route: 048
     Dates: start: 20090326, end: 20090405
  2. CARBOPLATIN [Suspect]
     Indication: METASTATIC MALIGNANT MELANOMA
     Dosage: TOTAL DAILY DOSE: 716.9 MG
     Route: 042
     Dates: start: 20090325, end: 20090325
  3. ABRAXANE [Suspect]
     Indication: METASTATIC MALIGNANT MELANOMA
     Dosage: TOTAL DAILY DOSE: 208 MG
     Route: 042
     Dates: start: 20090325, end: 20090325
  4. CLONAZEPAM [Concomitant]
     Dosage: TOTAL DAILY DOSE: 2 MG
  5. TRIHEXYPHENIDYL [Concomitant]
     Dosage: TOTAL DAILY DOSE: 10 MG
  6. PAROXETINE HCL [Concomitant]
     Dosage: 40MG IN THE MORNING; 10MG NIGHTLY
  7. SEROQUEL [Concomitant]
     Dosage: TOTAL DAILY DOSE: 200 MG
  8. LIPITOR [Concomitant]
     Dosage: TOTAL DAILY DOSE: 10 MG
  9. PREVACID [Concomitant]
     Dosage: TOTAL DAILY DOSE: 60 MG
  10. METOPROLOL TARTRATE [Concomitant]
     Dosage: TOTAL DAILY DOSE: 50 MG

REACTIONS (8)
  - DEHYDRATION [None]
  - DIARRHOEA [None]
  - HYPOTENSION [None]
  - NAUSEA [None]
  - NEUTROPENIA [None]
  - RENAL FAILURE ACUTE [None]
  - THROMBOCYTOPENIA [None]
  - VOMITING [None]
